FAERS Safety Report 23983127 (Version 2)
Quarter: 2024Q3

REPORT INFORMATION
  Report Type: Spontaneous
  Country: RS (occurrence: RS)
  Receive Date: 20240617
  Receipt Date: 20240705
  Transmission Date: 20241017
  Serious: Yes (Death, Life-Threatening, Hospitalization)
  Sender: BOEHRINGER INGELHEIM
  Company Number: RS-BoehringerIngelheim-2024-BI-034160

PATIENT
  Age: 77 Year
  Sex: Female

DRUGS (1)
  1. PRADAXA [Suspect]
     Active Substance: DABIGATRAN ETEXILATE MESYLATE
     Indication: Atrial fibrillation

REACTIONS (7)
  - Acute coronary syndrome [Fatal]
  - Aortic dissection [Fatal]
  - Angina pectoris [Fatal]
  - Cardiac failure [Fatal]
  - Blood pressure increased [Fatal]
  - Normocytic anaemia [Fatal]
  - Platelet aggregation inhibition [Fatal]

NARRATIVE: CASE EVENT DATE: 20240614
